FAERS Safety Report 7203584-3 (Version None)
Quarter: 2010Q4

REPORT INFORMATION
  Report Type: 
  Country: None (occurrence: None)
  Receive Date: 20101228
  Receipt Date: 20101228
  Transmission Date: 20110411
  Serious: Yes (Life-Threatening)
  Sender: FDA-Public Use
  Company Number: None

PATIENT
  Age: 5 Year
  Sex: Male

DRUGS (4)
  1. MONTELUKAST SODIUM [Suspect]
     Indication: ASTHMA PROPHYLAXIS
     Dosage: 5MG DAILY PO
     Route: 048
     Dates: start: 20091031, end: 20100731
  2. FEXOFENADINE HYDROCHLORIDE [Suspect]
  3. LANSOPRAZOLE [Suspect]
  4. ALBUTEROL [Concomitant]

REACTIONS (7)
  - ABNORMAL BEHAVIOUR [None]
  - HALLUCINATION [None]
  - HEADACHE [None]
  - MEMORY IMPAIRMENT [None]
  - PARAESTHESIA [None]
  - SLEEP DISORDER [None]
  - SUICIDAL IDEATION [None]
